FAERS Safety Report 18808895 (Version 1)
Quarter: 2021Q1

REPORT INFORMATION
  Report Type: Spontaneous
  Country: US (occurrence: US)
  Receive Date: 20210129
  Receipt Date: 20210129
  Transmission Date: 20210419
  Serious: Yes (Hospitalization)
  Sender: FDA-Public Use
  Company Number: US-ROCHE-2759606

PATIENT
  Age: 71 Year
  Sex: Female
  Weight: 68.5 kg

DRUGS (6)
  1. VALCYTE [Suspect]
     Active Substance: VALGANCICLOVIR HYDROCHLORIDE
     Indication: ANTIVIRAL PROPHYLAXIS
     Route: 048
     Dates: start: 20201104, end: 20210108
  2. TYLENOL [Concomitant]
     Active Substance: ACETAMINOPHEN
  3. ZOFRAN [Concomitant]
     Active Substance: ONDANSETRON HYDROCHLORIDE
  4. PEPCID [Concomitant]
     Active Substance: FAMOTIDINE
  5. GABAPENTIN. [Concomitant]
     Active Substance: GABAPENTIN
  6. DIFLUCAN [Concomitant]
     Active Substance: FLUCONAZOLE

REACTIONS (5)
  - Urinary tract infection [Unknown]
  - Nausea [Recovered/Resolved]
  - Malaise [Recovered/Resolved]
  - Diarrhoea [Recovered/Resolved]
  - Tachycardia [Recovered/Resolved]

NARRATIVE: CASE EVENT DATE: 20201231
